FAERS Safety Report 8492295-2 (Version None)
Quarter: 2012Q3

REPORT INFORMATION
  Report Type: 
  Country: None (occurrence: None)
  Receive Date: 20120706
  Receipt Date: 20120702
  Transmission Date: 20120928
  Serious: No
  Sender: FDA-Public Use
  Company Number: US-PFIZER INC-2012159435

PATIENT
  Sex: Male

DRUGS (3)
  1. MULTI-VITAMINS [Concomitant]
     Dosage: UNK
  2. SUTENT [Suspect]
     Indication: RENAL CANCER
     Dosage: 50 MG, DAILY CYCLIC
     Route: 048
  3. OMEPRAZOLE [Concomitant]
     Dosage: UNK

REACTIONS (1)
  - FATIGUE [None]
